FAERS Safety Report 5565898-2 (Version None)
Quarter: 2007Q4

REPORT INFORMATION
  Report Type: 
  Country: None (occurrence: None)
  Receive Date: 20071213
  Receipt Date: 20071205
  Transmission Date: 20080405
  Serious: Yes (Hospitalization)
  Sender: FDA-Public Use
  Company Number: 2007SP024399

PATIENT
  Age: 73 Year
  Sex: Male

DRUGS (4)
  1. TEMOZOLOMIDE [Suspect]
     Indication: METASTASES TO CENTRAL NERVOUS SYSTEM
     Dosage: 125 UNK;QD;PO
     Route: 048
     Dates: start: 20071002, end: 20071124
  2. TEMOZOLOMIDE [Suspect]
     Indication: NON-SMALL CELL LUNG CANCER
     Dosage: 125 UNK;QD;PO
     Route: 048
     Dates: start: 20071002, end: 20071124
  3. DOMPERIDON [Concomitant]
  4. DEXAMETHASONE TAB [Concomitant]

REACTIONS (5)
  - COUGH [None]
  - GENERAL PHYSICAL HEALTH DETERIORATION [None]
  - MALAISE [None]
  - NAUSEA [None]
  - RESTLESSNESS [None]
